FAERS Safety Report 10965026 (Version 1)
Quarter: 2015Q1

REPORT INFORMATION
  Report Type: Spontaneous
  Country: FR (occurrence: FR)
  Receive Date: 20150330
  Receipt Date: 20150330
  Transmission Date: 20150721
  Serious: Yes (Hospitalization, Other)
  Sender: FDA-Public Use
  Company Number: FR-AMGEN-FRASP2015028898

PATIENT
  Age: 66 Year
  Sex: Female

DRUGS (4)
  1. PHYSIOLOGICAL SALINE SOLUTION [Concomitant]
     Active Substance: SODIUM CHLORIDE
     Dosage: UNK
  2. NEULASTA [Suspect]
     Active Substance: PEGFILGRASTIM
     Indication: PROPHYLAXIS
     Dosage: UNK
     Route: 065
  3. ALIMTA [Concomitant]
     Active Substance: PEMETREXED DISODIUM
     Indication: LUNG NEOPLASM MALIGNANT
     Dosage: 500 MG, UNK
  4. CISPLATIN. [Concomitant]
     Active Substance: CISPLATIN
     Indication: LUNG NEOPLASM MALIGNANT
     Dosage: 75 MG/KG, UNK

REACTIONS (11)
  - Nausea [Unknown]
  - Vomiting [Unknown]
  - Infection [Unknown]
  - White blood cell count abnormal [Unknown]
  - Hypercalcaemia [Unknown]
  - Aplasia [Unknown]
  - C-reactive protein increased [Unknown]
  - Neutrophil count abnormal [Unknown]
  - Diarrhoea [Unknown]
  - Septic shock [Unknown]
  - Renal failure [Unknown]
